FAERS Safety Report 16301271 (Version 1)
Quarter: 2019Q2

REPORT INFORMATION
  Report Type: Spontaneous
  Country: US (occurrence: US)
  Receive Date: 20190510
  Receipt Date: 20190510
  Transmission Date: 20190711
  Serious: Yes (Other)
  Sender: FDA-Public Use
  Company Number: US-BAYER-2019-088077

PATIENT
  Age: 70 Year
  Sex: Female

DRUGS (4)
  1. ALKA-SELTZER ORIGINAL [Suspect]
     Active Substance: ANHYDROUS CITRIC ACID\ASPIRIN\SODIUM BICARBONATE
     Dosage: 1 DF, ONCE
     Route: 048
     Dates: start: 20190427, end: 20190427
  2. MOTRIN [Concomitant]
     Active Substance: IBUPROFEN
     Dosage: UNK
  3. TYLENOL [Concomitant]
     Active Substance: ACETAMINOPHEN
     Dosage: UNK
  4. ALKA-SELTZER ORIGINAL [Suspect]
     Active Substance: ANHYDROUS CITRIC ACID\ASPIRIN\SODIUM BICARBONATE
     Dosage: 1 DF
     Route: 048
     Dates: end: 20190427

REACTIONS (5)
  - Abdominal pain upper [Unknown]
  - Nausea [Unknown]
  - Rectal haemorrhage [Unknown]
  - Expired product administered [Unknown]
  - Incorrect dose administered [Unknown]

NARRATIVE: CASE EVENT DATE: 20190427
